FAERS Safety Report 8747826 (Version 2)
Quarter: 2012Q4

REPORT INFORMATION
  Report Type: 
  Country: JP (occurrence: JP)
  Receive Date: 20120827
  Receipt Date: 20120912
  Transmission Date: 20130627
  Serious: Yes (Other)
  Sender: FDA-Public Use
  Company Number: JP-PFIZER INC-2012205381

PATIENT
  Sex: Female

DRUGS (1)
  1. RELPAX [Suspect]
     Dosage: UNK
     Route: 048

REACTIONS (3)
  - Angioedema [Unknown]
  - Haemorrhage subcutaneous [Unknown]
  - Pain [Unknown]
